FAERS Safety Report 17247416 (Version 1)
Quarter: 2020Q1

REPORT INFORMATION
  Report Type: Spontaneous
  Country: ES (occurrence: ES)
  Receive Date: 20200108
  Receipt Date: 20200108
  Transmission Date: 20200409
  Serious: Yes (Other)
  Sender: FDA-Public Use
  Company Number: ES-MYLANLABS-2020M1001055

PATIENT
  Age: 42 Year
  Sex: Female

DRUGS (1)
  1. ATORVASTATIN [Suspect]
     Active Substance: ATORVASTATIN
     Indication: HYPERCHOLESTEROLAEMIA
     Dosage: 20 MILLIGRAM, QD
     Route: 065

REACTIONS (9)
  - Livedo reticularis [Recovering/Resolving]
  - Erythema multiforme [Recovering/Resolving]
  - Muscular weakness [Recovered/Resolved]
  - Asthenia [Recovered/Resolved]
  - Myalgia [Recovered/Resolved]
  - Rash maculo-papular [Recovering/Resolving]
  - Immune-mediated myositis [Recovered/Resolved]
  - Dermatomyositis [Recovering/Resolving]
  - Myopathy [Recovered/Resolved]
